FAERS Safety Report 13090016 (Version 2)
Quarter: 2019Q3

REPORT INFORMATION
  Report Type: Spontaneous
  Country: FR (occurrence: FR)
  Receive Date: 20170105
  Receipt Date: 20190822
  Transmission Date: 20191004
  Serious: Yes (Death, Other)
  Sender: FDA-Public Use
  Company Number: FR-BAYER-2017-001732

PATIENT
  Age: 67 Year
  Sex: Female

DRUGS (2)
  1. CEFTAZIDIME. [Suspect]
     Active Substance: CEFTAZIDIME
     Indication: INFECTED CYST
     Dosage: UNK
     Dates: start: 20161117
  2. CIFLOX [Suspect]
     Active Substance: CIPROFLOXACIN
     Indication: INFECTED CYST
     Dosage: UNK
     Dates: start: 20161130

REACTIONS (2)
  - Action tremor [Not Recovered/Not Resolved]
  - Asterixis [Not Recovered/Not Resolved]

NARRATIVE: CASE EVENT DATE: 20161211
